FAERS Safety Report 16350068 (Version 1)
Quarter: 2019Q2

REPORT INFORMATION
  Report Type: Spontaneous
  Country: US (occurrence: US)
  Receive Date: 20190523
  Receipt Date: 20190523
  Transmission Date: 20190711
  Serious: Yes (Hospitalization)
  Sender: FDA-Public Use
  Company Number: US-ASTRAZENECA-2019SE75718

PATIENT
  Age: 61 Year
  Sex: Male
  Weight: 77.1 kg

DRUGS (4)
  1. KLONOPIN [Concomitant]
     Active Substance: CLONAZEPAM
     Indication: ANXIETY
     Route: 048
  2. QUETIAPINE FUMARATE. [Suspect]
     Active Substance: QUETIAPINE FUMARATE
     Indication: BIPOLAR I DISORDER
     Route: 048
     Dates: start: 2011
  3. SIMVASTATIN. [Concomitant]
     Active Substance: SIMVASTATIN
     Indication: BLOOD CHOLESTEROL
     Route: 048
  4. KLONOPIN [Concomitant]
     Active Substance: CLONAZEPAM
     Indication: OBSESSIVE-COMPULSIVE DISORDER
     Route: 048

REACTIONS (7)
  - Drug withdrawal syndrome [Not Recovered/Not Resolved]
  - Blood cholesterol increased [Unknown]
  - Nausea [Not Recovered/Not Resolved]
  - Decreased appetite [Not Recovered/Not Resolved]
  - Pancreatitis [Recovered/Resolved]
  - Vomiting [Not Recovered/Not Resolved]
  - Insomnia [Not Recovered/Not Resolved]

NARRATIVE: CASE EVENT DATE: 2017
